FAERS Safety Report 13141443 (Version 1)
Quarter: 2017Q1

REPORT INFORMATION
  Report Type: Spontaneous
  Country: US (occurrence: US)
  Receive Date: 20170124
  Receipt Date: 20170124
  Transmission Date: 20170428
  Serious: Yes (Other)
  Sender: FDA-Public Use
  Company Number: US-DRREDDYS-USA/USA/17/0086446

PATIENT
  Age: 60 Year
  Sex: Male

DRUGS (2)
  1. TOPOTECAN HYDROCHLORIDE FOR INJECTION [Suspect]
     Active Substance: TOPOTECAN HYDROCHLORIDE
     Indication: NON-HODGKIN^S LYMPHOMA
     Dosage: GIVEN ON DAYS 1-6 ON AN 21-DAY SCHEDULE
     Route: 065
  2. BRENTUXIMAB VEDOTIN [Suspect]
     Active Substance: BRENTUXIMAB VEDOTIN
     Indication: NON-HODGKIN^S LYMPHOMA
     Dosage: GIVEN ON DAY 1 WITH TOPOTECAN ON A 21-DAY SCHEDULE
     Route: 065

REACTIONS (11)
  - Neutropenia [Unknown]
  - Syncope [Unknown]
  - Adrenal insufficiency [Unknown]
  - Hyperhidrosis [Unknown]
  - Dizziness [Unknown]
  - Eastern Cooperative Oncology Group performance status worsened [Unknown]
  - Metastases to meninges [Unknown]
  - Anaemia [Unknown]
  - Vertigo [Unknown]
  - Diarrhoea [Unknown]
  - Thrombocytopenia [Unknown]
